FAERS Safety Report 6981469-5 (Version None)
Quarter: 2010Q3

REPORT INFORMATION
  Report Type: 
  Country: None (occurrence: None)
  Receive Date: 20100914
  Receipt Date: 20100831
  Transmission Date: 20110219
  Serious: Yes (Other)
  Sender: FDA-Public Use
  Company Number: US-MYLANLABS-2010S1015964

PATIENT
  Age: 63 Year
  Sex: Female

DRUGS (12)
  1. WARFARIN SODIUM [Suspect]
     Dosage: 2.5MG DAILY 4 TIMES A WEEK
     Route: 048
  2. WARFARIN SODIUM [Suspect]
     Dosage: 2 TABLETS 3 DAYS A WEEK ADJUSTED TO A TARGET INR OF 2.5
     Route: 048
  3. CEPHALEXIN [Concomitant]
     Indication: CELLULITIS
     Route: 065
  4. SIMVASTATIN [Concomitant]
     Route: 065
  5. LOSARTAN POTASSIUM [Concomitant]
     Route: 065
  6. AMLODIPINE [Concomitant]
     Route: 065
  7. OMEPRAZOLE [Concomitant]
     Route: 065
  8. CLOPIDOGREL [Concomitant]
     Route: 065
  9. ALLOPURINOL [Concomitant]
     Route: 065
  10. HYDROCHLOROTHIAZIDE [Concomitant]
     Route: 065
  11. TOLTERODINE [Concomitant]
     Route: 065
  12. VANCOMYCIN [Concomitant]
     Indication: CELLULITIS
     Route: 042

REACTIONS (1)
  - CALCIPHYLAXIS [None]
